FAERS Safety Report 13945836 (Version 2)
Quarter: 2024Q1

REPORT INFORMATION
  Report Type: Spontaneous
  Country: US (occurrence: US)
  Receive Date: 20170907
  Receipt Date: 20240328
  Transmission Date: 20240410
  Serious: Yes (Life-Threatening, Hospitalization, Other)
  Sender: FDA-Public Use
  Company Number: US-MLMSERVICE-20170817-0854704-1

PATIENT
  Age: 59 Year
  Sex: Female

DRUGS (6)
  1. LINEZOLID [Suspect]
     Active Substance: LINEZOLID
     Indication: Staphylococcal infection
     Dosage: 600 MILLIGRAM, BID
     Route: 042
  2. LINEZOLID [Suspect]
     Active Substance: LINEZOLID
     Indication: Localised infection
  3. INSULIN NOS [Concomitant]
     Active Substance: INSULIN NOS
     Indication: Diabetes mellitus
     Dosage: UNKNOWN
     Route: 065
  4. LINEZOLID [Interacting]
     Active Substance: LINEZOLID
     Dosage: NOT APPLICABLE (COMPANY^S SUSPECT PRODUCT NOT ADMINISTERED)
  5. WARFARIN [Interacting]
     Active Substance: WARFARIN
     Indication: Embolism venous
     Dosage: UNKNOWN
     Route: 065
  6. WARFARIN [Interacting]
     Active Substance: WARFARIN
     Indication: Anticoagulant therapy

REACTIONS (7)
  - Thrombocytopenia [Recovered/Resolved]
  - Hypoglycaemia [Recovered/Resolved]
  - Anticoagulation drug level above therapeutic [Recovering/Resolving]
  - Transaminases abnormal [Recovering/Resolving]
  - Lactic acidosis [Recovering/Resolving]
  - Shock [Recovered/Resolved]
  - Drug interaction [Recovering/Resolving]
